FAERS Safety Report 11749724 (Version 1)
Quarter: 2015Q4

REPORT INFORMATION
  Report Type: Spontaneous
  Country: US (occurrence: None)
  Receive Date: 20151116
  Receipt Date: 20151116
  Transmission Date: 20160304
  Serious: Yes (Hospitalization)
  Sender: FDA-Public Use
  Company Number: None

PATIENT
  Age: 36 Year
  Sex: Male
  Weight: 100.4 kg

DRUGS (2)
  1. NAPROXEN. [Suspect]
     Active Substance: NAPROXEN
     Route: 048
     Dates: start: 20150629, end: 20150702
  2. AMOXICILLIN/CLAVULANATE [Suspect]
     Active Substance: AMOXICILLIN\CLAVULANATE POTASSIUM
     Indication: EAR INFECTION
     Dosage: MG BID PO
     Route: 048
     Dates: start: 20150629, end: 20150702

REACTIONS (4)
  - Urticaria [None]
  - Rash [None]
  - Candida infection [None]
  - Dermatitis bullous [None]

NARRATIVE: CASE EVENT DATE: 20150702
